FAERS Safety Report 12547986 (Version 2)
Quarter: 2016Q3

REPORT INFORMATION
  Report Type: Report from Study
  Country: US (occurrence: US)
  Receive Date: 20160712
  Receipt Date: 20160803
  Transmission Date: 20161109
  Serious: Yes (Other)
  Sender: FDA-Public Use
  Company Number: PHEH2016US017030

PATIENT
  Sex: Female

DRUGS (2)
  1. SIGNIFOR LAR [Suspect]
     Active Substance: PASIREOTIDE
     Indication: ACROMEGALY
     Dosage: 40 MG, QMO
     Route: 030
     Dates: start: 20160415
  2. SIGNIFOR LAR [Suspect]
     Active Substance: PASIREOTIDE
     Indication: GIGANTISM

REACTIONS (3)
  - Malaise [Unknown]
  - Diabetes mellitus [Unknown]
  - Vomiting [Unknown]
